FAERS Safety Report 4938693-2 (Version None)
Quarter: 2006Q1

REPORT INFORMATION
  Report Type: 
  Country: None (occurrence: None)
  Receive Date: 20060127
  Receipt Date: 20051020
  Transmission Date: 20060701
  Serious: Yes (Other)
  Sender: FDA-Public Use
  Company Number: 2005146173

PATIENT
  Age: 81 Year
  Sex: Female
  Weight: 67.586 kg

DRUGS (4)
  1. LYRICA [Suspect]
     Indication: NEUROPATHY
     Dosage: 50 MG (50 MG,ONE TIME ONLY),ORAL
     Route: 048
     Dates: start: 20051019, end: 20051020
  2. SYNTHROID [Concomitant]
  3. FOSAMAX [Concomitant]
  4. VITAMIN B12 [Concomitant]

REACTIONS (4)
  - ASTHENOPIA [None]
  - DIZZINESS [None]
  - MUSCULAR WEAKNESS [None]
  - SOMNOLENCE [None]
